FAERS Safety Report 4757958-0 (Version None)
Quarter: 2005Q3

REPORT INFORMATION
  Report Type: 
  Country: None (occurrence: None)
  Receive Date: 20050830
  Receipt Date: 20050818
  Transmission Date: 20060218
  Serious: Yes (Other)
  Sender: FDA-Public Use
  Company Number: 2005037504

PATIENT
  Sex: Female

DRUGS (1)
  1. CORTEF [Suspect]
     Indication: ILL-DEFINED DISORDER
     Dosage: (10 MG,)

REACTIONS (8)
  - ADRENOCORTICAL INSUFFICIENCY CHRONIC [None]
  - CONDITION AGGRAVATED [None]
  - DIZZINESS [None]
  - DRUG EFFECT DECREASED [None]
  - FATIGUE [None]
  - HYPOTENSION [None]
  - PHARMACEUTICAL PRODUCT COMPLAINT [None]
  - POOR QUALITY DRUG ADMINISTERED [None]
